FAERS Safety Report 23630887 (Version 1)
Quarter: 2024Q1

REPORT INFORMATION
  Report Type: Spontaneous
  Country: US (occurrence: US)
  Receive Date: 20240314
  Receipt Date: 20240314
  Transmission Date: 20240409
  Serious: Yes (Hospitalization, Congenital Anomaly, Other)
  Sender: FDA-Public Use
  Company Number: US-CELGENE-USA-20181204572

PATIENT
  Age: 0 Year
  Sex: Female

DRUGS (1)
  1. OTEZLA [Suspect]
     Active Substance: APREMILAST
     Indication: Exposure during pregnancy
     Dosage: UNK
     Route: 064

REACTIONS (6)
  - Jaundice [Unknown]
  - Congenital central nervous system anomaly [Unknown]
  - Respiratory arrest [Unknown]
  - Heart rate increased [Unknown]
  - Diabetes insipidus [Unknown]
  - Premature baby [Recovered/Resolved]

NARRATIVE: CASE EVENT DATE: 20161123
